FAERS Safety Report 9129177 (Version 2)
Quarter: 2013Q3

REPORT INFORMATION
  Report Type: Report from Study
  Country: US (occurrence: US)
  Receive Date: 20130228
  Receipt Date: 20130704
  Transmission Date: 20140515
  Serious: Yes (Hospitalization)
  Sender: FDA-Public Use
  Company Number: US-ELI_LILLY_AND_COMPANY-US201204000891

PATIENT
  Age: 95 Year
  Sex: Female

DRUGS (13)
  1. TERIPARATIDE [Suspect]
     Indication: OSTEOPOROSIS
     Dosage: 20 UG, QD
     Dates: start: 20111212, end: 20120316
  2. TERIPARATIDE [Suspect]
     Dosage: 20 UG, QD
  3. TERIPARATIDE [Suspect]
     Dosage: 20 UG, QD
  4. LIPITOR [Concomitant]
     Dosage: 10 MG, EACH EVENING
  5. K-DUR [Concomitant]
     Dosage: 20 MEQ, QD
  6. COREG [Concomitant]
     Dosage: 12.5 MG, BID
  7. FUROSEMIDE [Concomitant]
     Indication: JOINT SWELLING
     Dosage: 20 MG, PRN
  8. FLAXSEED OIL [Concomitant]
     Dosage: 1 DF, QD
  9. CALCIUM MAGNESIUM ZINC [Concomitant]
     Dosage: UNK
  10. VITAMIN C [Concomitant]
     Dosage: UNK, QD
  11. LUTEIN [Concomitant]
     Dosage: UNK
  12. COQ10 [Concomitant]
     Dosage: 50 MG, UNK
  13. VITAMIN D [Concomitant]
     Dosage: UNK

REACTIONS (9)
  - Rib fracture [Unknown]
  - Fall [Unknown]
  - Joint injury [Unknown]
  - Rib fracture [Unknown]
  - Fall [Unknown]
  - Injury [Unknown]
  - Fatigue [Not Recovered/Not Resolved]
  - Cough [Recovered/Resolved]
  - Ear congestion [Unknown]
